FAERS Safety Report 15606939 (Version 1)
Quarter: 2018Q4

REPORT INFORMATION
  Report Type: Spontaneous
  Country: US (occurrence: US)
  Receive Date: 20181111
  Receipt Date: 20181111
  Transmission Date: 20190205
  Serious: Yes (Other)
  Sender: FDA-Public Use
  Company Number: None

PATIENT
  Age: 28 Year
  Sex: Female
  Weight: 75.6 kg

DRUGS (1)
  1. EPIDUO FORTE [Suspect]
     Active Substance: ADAPALENE\BENZOYL PEROXIDE
     Indication: ACNE
     Dosage: ?          OTHER STRENGTH:PEA SIZE AMOUNT;?
     Route: 061
     Dates: start: 20181105, end: 20181106

REACTIONS (9)
  - Swollen tongue [None]
  - Skin reaction [None]
  - Pruritus generalised [None]
  - Muscle mass [None]
  - Muscle swelling [None]
  - Swelling face [None]
  - Hypoaesthesia [None]
  - Throat tightness [None]
  - Dysphagia [None]

NARRATIVE: CASE EVENT DATE: 20181106
